FAERS Safety Report 14354158 (Version 2)
Quarter: 2018Q2

REPORT INFORMATION
  Report Type: Spontaneous
  Country: FR (occurrence: FR)
  Receive Date: 20180105
  Receipt Date: 20180509
  Transmission Date: 20180711
  Serious: Yes (Other)
  Sender: FDA-Public Use
  Company Number: FR-MERCK KGAA-2038456

PATIENT
  Age: 51 Year
  Sex: Female
  Weight: 82 kg

DRUGS (2)
  1. NOVOTHYROX [Suspect]
     Active Substance: LEVOTHYROXINE SODIUM
     Indication: THYROID CANCER
     Route: 048
     Dates: start: 20170504, end: 20170916
  2. LEVOTHYROXINE SODIUM. [Suspect]
     Active Substance: LEVOTHYROXINE SODIUM
     Route: 048
     Dates: start: 20170504, end: 20170916

REACTIONS (18)
  - Insomnia [Unknown]
  - Vertigo [Unknown]
  - Vision blurred [Unknown]
  - Formication [Unknown]
  - Muscle spasms [Recovered/Resolved]
  - Pain in extremity [Unknown]
  - Muscle spasms [Recovering/Resolving]
  - Migraine [Unknown]
  - Balance disorder [Unknown]
  - Diarrhoea [Unknown]
  - Blood thyroid stimulating hormone normal [Recovered/Resolved]
  - Disturbance in attention [Recovered/Resolved]
  - Fatigue [Not Recovered/Not Resolved]
  - Laryngitis [Recovered/Resolved]
  - Memory impairment [Recovered/Resolved]
  - Hyperthyroidism [Recovered/Resolved]
  - Palpitations [Unknown]
  - Hyperhidrosis [Unknown]

NARRATIVE: CASE EVENT DATE: 2017
